FAERS Safety Report 8989823 (Version 9)
Quarter: 2014Q1

REPORT INFORMATION
  Report Type: Spontaneous
  Country: US (occurrence: US)
  Receive Date: 20121228
  Receipt Date: 20140220
  Transmission Date: 20141002
  Serious: Yes (Life-Threatening, Hospitalization, Other)
  Sender: FDA-Public Use
  Company Number: US-JNJFOC-20121209212

PATIENT
  Age: 22 Year
  Sex: Female
  Weight: 56.7 kg

DRUGS (16)
  1. TYLENOL EXTRA STRENGTH [Suspect]
     Indication: INFLUENZA LIKE ILLNESS
     Dosage: CONFLICTING REPORT RECEIVED ON 09-MAY-2013 OF A WEBSITE LINK STATING 2008 AS DRUG START.
     Route: 048
     Dates: start: 20091113, end: 20091127
  2. TYLENOL EXTRA STRENGTH [Suspect]
     Indication: PYREXIA
     Dosage: CONFLICTING REPORT RECEIVED ON 09-MAY-2013 OF A WEBSITE LINK STATING 2008 AS DRUG START.
     Route: 048
     Dates: start: 20091113, end: 20091127
  3. TYLENOL EXTRA STRENGTH [Suspect]
     Indication: PAIN
     Dosage: CONFLICTING REPORT RECEIVED ON 09-MAY-2013 OF A WEBSITE LINK STATING 2008 AS DRUG START.
     Route: 048
     Dates: start: 20091113, end: 20091127
  4. PERCOCET [Suspect]
     Indication: PAIN
     Dates: start: 20091111, end: 20091127
  5. VALTREX [Suspect]
     Indication: HERPES SIMPLEX
     Route: 065
     Dates: start: 200911
  6. ZYRTEC [Concomitant]
     Indication: RHINITIS ALLERGIC
     Route: 065
     Dates: start: 200905
  7. ACYCLOVIR [Concomitant]
     Indication: HYPERSENSITIVITY
     Route: 065
     Dates: start: 200911
  8. PREDNISONE [Concomitant]
     Indication: HYPERSENSITIVITY
     Route: 065
     Dates: start: 200911
  9. AUGMENTIN [Concomitant]
     Indication: PHARYNGITIS
     Route: 065
     Dates: start: 200902
  10. WELLBUTRIN [Concomitant]
     Indication: DEPRESSION
     Route: 065
     Dates: start: 2009
  11. BACTRIM [Concomitant]
     Indication: STREPTOCOCCAL INFECTION
     Route: 065
     Dates: start: 200905
  12. MONISTAT [Concomitant]
     Indication: PRURITUS
     Route: 065
     Dates: start: 200905
  13. VISTARIL [Concomitant]
     Indication: HYPERSENSITIVITY
     Route: 065
     Dates: start: 200911
  14. SYNTHROID [Concomitant]
     Indication: PRODUCT USED FOR UNKNOWN INDICATION
     Route: 065
  15. LEVOTHROID [Concomitant]
     Indication: HYPOTHYROIDISM
     Route: 065
  16. VALACYCLOVIR [Concomitant]
     Indication: GENITAL HERPES
     Route: 065

REACTIONS (6)
  - Overdose [Unknown]
  - Acute hepatic failure [Recovering/Resolving]
  - Toxicity to various agents [Unknown]
  - Hepatotoxicity [Recovering/Resolving]
  - Hepatic encephalopathy [Recovering/Resolving]
  - Acute hepatic failure [Unknown]
